FAERS Safety Report 17589845 (Version 2)
Quarter: 2021Q2

REPORT INFORMATION
  Report Type: Spontaneous
  Country: US (occurrence: US)
  Receive Date: 20200327
  Receipt Date: 20210413
  Transmission Date: 20210716
  Serious: No
  Sender: FDA-Public Use
  Company Number: US-ALLERGAN-2001511US

PATIENT
  Sex: Female

DRUGS (4)
  1. LATISSE [Suspect]
     Active Substance: BIMATOPROST
     Indication: PRODUCT USED FOR UNKNOWN INDICATION
     Dosage: UNK, QD
     Route: 061
     Dates: start: 20191121
  2. LATISSE [Suspect]
     Active Substance: BIMATOPROST
     Dosage: EVERY 3 DAYS
     Route: 061
  3. LATISSE [Suspect]
     Active Substance: BIMATOPROST
     Dosage: UNK, QOD
     Route: 061
     Dates: start: 20191118, end: 20191120
  4. LATISSE [Suspect]
     Active Substance: BIMATOPROST
     Dosage: UNK, QOD
     Route: 061

REACTIONS (3)
  - Sensitive skin [Unknown]
  - Inappropriate schedule of product administration [Unknown]
  - Scleral pigmentation [Unknown]
